FAERS Safety Report 24868803 (Version 1)
Quarter: 2025Q1

REPORT INFORMATION
  Report Type: Report from Study
  Country: US (occurrence: US)
  Receive Date: 20250121
  Receipt Date: 20250121
  Transmission Date: 20250408
  Serious: Yes (Other)
  Sender: BAYER HEALTHCARE LLC
  Company Number: US-BAYER-2025A006370

PATIENT
  Age: 40 Year
  Sex: Female

DRUGS (10)
  1. NAPROXEN SODIUM [Suspect]
     Active Substance: NAPROXEN SODIUM
  2. CHERATUSSIN AC [Suspect]
     Active Substance: CODEINE PHOSPHATE\GUAIFENESIN
  3. CLONAZEPAM [Suspect]
     Active Substance: CLONAZEPAM
  4. LATUDA [Suspect]
     Active Substance: LURASIDONE HYDROCHLORIDE
  5. LITHIUM [Suspect]
     Active Substance: LITHIUM
  6. CANNABIS SATIVA SUBSP. INDICA TOP [Suspect]
     Active Substance: CANNABIS SATIVA SUBSP. INDICA TOP
  7. ONDANSETRON [Suspect]
     Active Substance: ONDANSETRON
  8. PREDNISONE [Suspect]
     Active Substance: PREDNISONE
  9. VYVANSE [Suspect]
     Active Substance: LISDEXAMFETAMINE DIMESYLATE
  10. ZANAFLEX [Suspect]
     Active Substance: TIZANIDINE HYDROCHLORIDE

REACTIONS (11)
  - Contusion [None]
  - Drug interaction [None]
  - Foaming at mouth [None]
  - Leukocytosis [None]
  - Nausea [None]
  - Pneumonia streptococcal [None]
  - Renal failure [None]
  - Retching [None]
  - Sepsis [None]
  - Urinary retention [None]
  - Vomiting [None]
